FAERS Safety Report 11290254 (Version 3)
Quarter: 2016Q3

REPORT INFORMATION
  Report Type: Report from Study
  Country: DE (occurrence: DE)
  Receive Date: 20150721
  Receipt Date: 20160902
  Transmission Date: 20161109
  Serious: Yes (Life-Threatening, Hospitalization)
  Sender: FDA-Public Use
  Company Number: DE-ROCHE-1566315

PATIENT
  Age: 73 Year
  Sex: Male
  Weight: 53 kg

DRUGS (13)
  1. LANTUS [Concomitant]
     Active Substance: INSULIN GLARGINE
     Indication: DIABETES MELLITUS
     Route: 058
  2. APIDRA [Concomitant]
     Active Substance: INSULIN GLULISINE
     Indication: DIABETES MELLITUS
     Route: 058
  3. METAMIZOL [Concomitant]
     Active Substance: METAMIZOLE SODIUM
     Indication: PAIN
     Route: 048
     Dates: start: 20150408
  4. TARGIN [Concomitant]
     Active Substance: NALOXONE HYDROCHLORIDE\OXYCODONE HYDROCHLORIDE
     Indication: PAIN
     Dosage: 40/20
     Route: 048
     Dates: start: 20150408
  5. RINGER SOLUTION [Concomitant]
     Route: 042
  6. ALIMTA [Suspect]
     Active Substance: PEMETREXED DISODIUM
     Indication: BRONCHIAL CARCINOMA
     Route: 042
     Dates: start: 20150415
  7. DEXA-RATIOPHARM [Concomitant]
     Route: 042
     Dates: start: 20150415
  8. FOLSAN [Concomitant]
     Active Substance: FOLIC ACID
     Indication: PROPHYLAXIS
     Route: 048
     Dates: start: 20150415
  9. BEVACIZUMAB [Suspect]
     Active Substance: BEVACIZUMAB
     Indication: BRONCHIAL CARCINOMA
     Dosage: =435 MG
     Route: 042
     Dates: start: 20150415
  10. CISPLATIN. [Suspect]
     Active Substance: CISPLATIN
     Indication: BRONCHIAL CARCINOMA
     Route: 042
     Dates: start: 20150415
  11. EMEND [Concomitant]
     Active Substance: APREPITANT
     Indication: PROPHYLAXIS
     Dosage: AMPOULE
     Route: 042
  12. ONDANSETRON [Concomitant]
     Active Substance: ONDANSETRON
     Indication: PROPHYLAXIS
     Dosage: AMPOULE
     Route: 042
     Dates: start: 20150415
  13. DEXA-RATIOPHARM [Concomitant]
     Dosage: ON D0-D2
     Route: 048
     Dates: start: 20150414

REACTIONS (3)
  - Ileus [Recovered/Resolved]
  - Venous thrombosis limb [Recovering/Resolving]
  - Paraneoplastic syndrome [Recovering/Resolving]

NARRATIVE: CASE EVENT DATE: 20150417
